FAERS Safety Report 21315534 (Version 1)
Quarter: 2022Q3

REPORT INFORMATION
  Report Type: Spontaneous
  Country: KR (occurrence: KR)
  Receive Date: 20220909
  Receipt Date: 20220909
  Transmission Date: 20221026
  Serious: Yes (Death, Hospitalization, Other)
  Sender: FDA-Public Use
  Company Number: KR-SANOFI-AVENTIS-2010SA053975

PATIENT
  Age: 54 Year
  Sex: Male

DRUGS (6)
  1. CLOPIDOGREL BISULFATE [Suspect]
     Active Substance: CLOPIDOGREL BISULFATE
     Indication: Coronary arterial stent insertion
     Dosage: 75 MG,QD
     Route: 048
     Dates: start: 2003
  2. CLOPIDOGREL BISULFATE [Suspect]
     Active Substance: CLOPIDOGREL BISULFATE
     Indication: Percutaneous coronary intervention
  3. ASPIRIN [Suspect]
     Active Substance: ASPIRIN
     Indication: Coronary arterial stent insertion
     Dosage: 100 MG,QD
     Route: 065
     Dates: start: 2003
  4. ASPIRIN [Suspect]
     Active Substance: ASPIRIN
     Indication: Percutaneous coronary intervention
  5. WARFARIN SODIUM [Suspect]
     Active Substance: WARFARIN SODIUM
     Indication: Thrombosis in device
     Dosage: UNK UNK,UNK
     Route: 065
     Dates: start: 200808
  6. CILOSTAZOL [Suspect]
     Active Substance: CILOSTAZOL
     Indication: Thrombosis in device
     Dosage: 100 MG,BID
     Dates: start: 200807

REACTIONS (5)
  - Renal haemorrhage [Fatal]
  - Flank pain [Fatal]
  - Coagulopathy [Fatal]
  - Metabolic acidosis [Fatal]
  - Multiple organ dysfunction syndrome [Fatal]

NARRATIVE: CASE EVENT DATE: 20081101
